FAERS Safety Report 24991840 (Version 2)
Quarter: 2025Q1

REPORT INFORMATION
  Report Type: Report from Study
  Country: JP (occurrence: JP)
  Receive Date: 20250220
  Receipt Date: 20250331
  Transmission Date: 20250409
  Serious: No
  Sender: EISAI
  Company Number: JP-Eisai-202415118_LEQ_P_1

PATIENT
  Age: 69 Year
  Sex: Male
  Weight: 74 kg

DRUGS (1)
  1. LEQEMBI [Suspect]
     Active Substance: LECANEMAB-IRMB
     Indication: Cognitive disorder
     Dates: start: 20240722, end: 20240722

REACTIONS (2)
  - Oedema [Recovered/Resolved]
  - Infusion related reaction [Recovered/Resolved]

NARRATIVE: CASE EVENT DATE: 20240722
